FAERS Safety Report 21696083 (Version 2)
Quarter: 2022Q4

REPORT INFORMATION
  Report Type: Spontaneous
  Country: US (occurrence: US)
  Receive Date: 20221207
  Receipt Date: 20221212
  Transmission Date: 20230113
  Serious: No
  Sender: FDA-Public Use
  Company Number: US-PFIZER INC-2020510958

PATIENT
  Age: 64 Year
  Sex: Female

DRUGS (4)
  1. BRAFTOVI [Suspect]
     Active Substance: ENCORAFENIB
     Indication: Brain neoplasm malignant
     Dosage: 450 MG
  2. BRAFTOVI [Suspect]
     Active Substance: ENCORAFENIB
     Indication: Glioblastoma
     Dosage: 75 MG
  3. MEKTOVI [Suspect]
     Active Substance: BINIMETINIB
     Indication: Brain neoplasm malignant
     Dosage: 45 MG
  4. MEKTOVI [Suspect]
     Active Substance: BINIMETINIB
     Indication: Glioblastoma
     Dosage: 15 MG

REACTIONS (3)
  - Off label use [Unknown]
  - Product dispensing error [Unknown]
  - Diarrhoea [Unknown]
